FAERS Safety Report 19110600 (Version 1)
Quarter: 2021Q2

REPORT INFORMATION
  Report Type: Spontaneous
  Country: US (occurrence: US)
  Receive Date: 20210408
  Receipt Date: 20210408
  Transmission Date: 20210717
  Serious: No
  Sender: FDA-Public Use
  Company Number: US-SA-2021SA112853

PATIENT
  Age: 78 Year
  Sex: Male

DRUGS (2)
  1. AVALIDE [Suspect]
     Active Substance: HYDROCHLOROTHIAZIDE\IRBESARTAN
     Dosage: UNK
     Route: 065
     Dates: end: 20201125
  2. AVAPRO [Suspect]
     Active Substance: IRBESARTAN
     Dosage: UNK
     Route: 065
     Dates: start: 202012

REACTIONS (1)
  - Fluid retention [Unknown]
